FAERS Safety Report 9922024 (Version 1)
Quarter: 2014Q1

REPORT INFORMATION
  Report Type: Spontaneous
  Country: US (occurrence: US)
  Receive Date: 20140225
  Receipt Date: 20140225
  Transmission Date: 20141002
  Serious: No
  Sender: FDA-Public Use
  Company Number: US-009507513-1402USA009026

PATIENT
  Sex: Female

DRUGS (3)
  1. JANUMET [Suspect]
     Indication: TYPE 2 DIABETES MELLITUS
     Dosage: 1 UNK, UNK
     Route: 048
     Dates: start: 2012
  2. METOPROLOL [Concomitant]
  3. SEROQUEL [Concomitant]

REACTIONS (1)
  - Blood glucose decreased [Not Recovered/Not Resolved]
